FAERS Safety Report 4830166-0 (Version None)
Quarter: 2005Q4

REPORT INFORMATION
  Report Type: 
  Country: None (occurrence: None)
  Receive Date: 20051117
  Receipt Date: 20050930
  Transmission Date: 20060501
  Serious: Yes (Hospitalization, Disabling)
  Sender: FDA-Public Use
  Company Number: US-MERCK-0510USA00714

PATIENT
  Age: 44 Year
  Sex: Male
  Weight: 91 kg

DRUGS (13)
  1. VIOXX [Suspect]
     Indication: BACK PAIN
     Route: 048
     Dates: start: 20010116, end: 20040628
  2. ASPIRIN [Concomitant]
     Route: 065
  3. CRESTOR [Concomitant]
     Route: 065
  4. DARVOCET-N 100 [Concomitant]
     Route: 065
  5. EFFEXOR [Concomitant]
     Route: 065
  6. KLONOPIN [Concomitant]
     Route: 065
  7. NORVASC [Concomitant]
     Route: 065
  8. PREVACID [Concomitant]
     Route: 065
  9. PRILOSEC [Concomitant]
     Route: 065
  10. ULTRACET [Concomitant]
     Route: 065
  11. ULTRAM [Concomitant]
     Route: 065
  12. ZETIA [Concomitant]
     Route: 065
  13. ZOCOR [Concomitant]
     Route: 065

REACTIONS (7)
  - ANXIETY [None]
  - BACK PAIN [None]
  - CARDIAC DISORDER [None]
  - CARDIAC OPERATION [None]
  - DEPRESSION [None]
  - LIMB CRUSHING INJURY [None]
  - MYOCARDIAL INFARCTION [None]
